FAERS Safety Report 5311588-0 (Version None)
Quarter: 2007Q2

REPORT INFORMATION
  Report Type: 
  Country: None (occurrence: None)
  Receive Date: 20070430
  Receipt Date: 20070418
  Transmission Date: 20071010
  Serious: Yes (Hospitalization)
  Sender: FDA-Public Use
  Company Number: FR-ROCHE-493547

PATIENT
  Age: 48 Year
  Sex: Female

DRUGS (2)
  1. ROCEPHIN [Suspect]
     Dosage: FORM: INJECTABLE SOLUTION.
     Route: 042
     Dates: start: 20070202, end: 20070205
  2. TAVANIC [Suspect]
     Dosage: FORM: INJECTABLE SOLUTION.
     Route: 042
     Dates: start: 20070202, end: 20070212

REACTIONS (1)
  - VASCULAR PURPURA [None]
